FAERS Safety Report 25731343 (Version 1)
Quarter: 2025Q3

REPORT INFORMATION
  Report Type: Spontaneous
  Country: JP (occurrence: JP)
  Receive Date: 20250827
  Receipt Date: 20250827
  Transmission Date: 20251020
  Serious: Yes (Hospitalization)
  Sender: EISAI
  Company Number: JP-Eisai-202506206_LEN-RCC_P_1

PATIENT
  Sex: Male

DRUGS (2)
  1. LENVIMA [Suspect]
     Active Substance: LENVATINIB
     Indication: Renal cell carcinoma
     Route: 048
     Dates: start: 20250814, end: 202508
  2. KEYTRUDA [Suspect]
     Active Substance: PEMBROLIZUMAB
     Indication: Renal cell carcinoma
     Dosage: 1 COURSE
     Route: 042
     Dates: start: 20250814, end: 20250814

REACTIONS (1)
  - Immune-mediated hepatitis [Not Recovered/Not Resolved]

NARRATIVE: CASE EVENT DATE: 20250801
